FAERS Safety Report 14967176 (Version 1)
Quarter: 2018Q2

REPORT INFORMATION
  Report Type: Report from Study
  Country: CN (occurrence: CN)
  Receive Date: 20180604
  Receipt Date: 20180604
  Transmission Date: 20180711
  Serious: Yes (Other)
  Sender: FDA-Public Use
  Company Number: CN-CHEPLA-C20170641

PATIENT

DRUGS (4)
  1. CORTICOSTEROIDS [Concomitant]
     Active Substance: CORTICOSTEROID NOS
  2. ATRA [Suspect]
     Active Substance: TRETINOIN
     Indication: IMMUNE THROMBOCYTOPENIC PURPURA
     Dosage: 10 MG TWICE DAILY
     Route: 048
  3. CICLOSPORIN [Concomitant]
     Active Substance: CYCLOSPORINE
  4. DANAZOL. [Suspect]
     Active Substance: DANAZOL
     Indication: THROMBOCYTOPENIA
     Dosage: 200 MG TWICE A DAY
     Route: 048

REACTIONS (12)
  - Dizziness [Unknown]
  - Gastrointestinal disorder [Unknown]
  - Oedema [Unknown]
  - Dry skin [Unknown]
  - Headache [Unknown]
  - Liver injury [Unknown]
  - Amenorrhoea [Unknown]
  - Hypertension [Unknown]
  - Disease recurrence [Unknown]
  - Malaise [Unknown]
  - Fatigue [Unknown]
  - Product use in unapproved indication [Recovered/Resolved]
